FAERS Safety Report 6493749-0 (Version None)
Quarter: 2009Q4

REPORT INFORMATION
  Report Type: 
  Country: None (occurrence: None)
  Receive Date: 20091214
  Receipt Date: 20081120
  Transmission Date: 20100525
  Serious: No
  Sender: FDA-Public Use
  Company Number: US-BRISTOL-MYERS SQUIBB COMPANY-14328793

PATIENT
  Age: 26 Year
  Sex: Female

DRUGS (2)
  1. ABILIFY [Suspect]
     Indication: OBSESSIVE-COMPULSIVE DISORDER
     Dosage: 1/4 PILL,SINGLE DAILY DOSE AT BED TIME
     Route: 048
     Dates: start: 20080901
  2. ABILIFY [Suspect]
     Indication: ANXIETY
     Dosage: 1/4 PILL,SINGLE DAILY DOSE AT BED TIME
     Route: 048
     Dates: start: 20080901

REACTIONS (1)
  - FORMICATION [None]
